FAERS Safety Report 19183486 (Version 1)
Quarter: 2021Q2

REPORT INFORMATION
  Report Type: Spontaneous
  Country: FR (occurrence: FR)
  Receive Date: 20210427
  Receipt Date: 20210427
  Transmission Date: 20210717
  Serious: Yes (Hospitalization)
  Sender: FDA-Public Use
  Company Number: FR-CADILA HEALTHCARE LIMITED-FR-ZYDUS-030940

PATIENT

DRUGS (11)
  1. CEFPODOXIME [Suspect]
     Active Substance: CEFPODOXIME
     Indication: SUICIDE ATTEMPT
     Dosage: 2000 MILLIGRAM,(INTERVAL :1 TOTAL)
     Route: 048
     Dates: start: 20180701, end: 20180701
  2. HEPATOUM [Suspect]
     Active Substance: DIETARY SUPPLEMENT\HERBALS
     Indication: SUICIDE ATTEMPT
     Dosage: UNK
     Route: 048
     Dates: start: 20180701, end: 20180701
  3. SERESTA [Suspect]
     Active Substance: OXAZEPAM
     Indication: SUICIDE ATTEMPT
     Dosage: 10 MILLIGRAM,310 MG, TOTAL,(INTERVAL :1 TOTAL)
     Route: 048
     Dates: start: 20180701, end: 20180701
  4. AZITHROMYCIN ANHYDROUS. [Suspect]
     Active Substance: AZITHROMYCIN ANHYDROUS
     Indication: SUICIDE ATTEMPT
     Dosage: 1500 MG, TOTAL,(INTERVAL :1 TOTAL)
     Route: 048
     Dates: start: 20180701, end: 20180701
  5. ARESTAL [Suspect]
     Active Substance: LOPERAMIDE OXIDE
     Indication: SUICIDE ATTEMPT
     Dosage: 30 MILLIGRAM,(INTERVAL :1 TOTAL)
     Route: 048
     Dates: start: 20180701, end: 20180701
  6. PREDNISOLON [PREDNISOLONE] [Suspect]
     Active Substance: PREDNISOLONE
     Indication: SUICIDE ATTEMPT
     Dosage: 20 MILLIGRAM,200 MG, TOTAL,(INTERVAL :1 TOTAL
     Route: 048
     Dates: start: 20180701, end: 20180701
  7. AUGMENTIN [Suspect]
     Active Substance: AMOXICILLIN\CLAVULANATE POTASSIUM
     Indication: SUICIDE ATTEMPT
     Dosage: 6 GRAM,6 G, 1 DAY,(INTERVAL :1 DAYS)
     Route: 048
     Dates: start: 20180701, end: 20180701
  8. ESCITALOPRAM [Suspect]
     Active Substance: ESCITALOPRAM OXALATE
     Indication: SUICIDE ATTEMPT
     Dosage: 10 MILLIGRAM,OVERDOSE: 140 MG, 1 DAY,(INTERVAL :1 DAYS
     Route: 048
     Dates: start: 20180701, end: 20180701
  9. BILASTINE [Suspect]
     Active Substance: BILASTINE
     Indication: SUICIDE ATTEMPT
     Dosage: 120 MILLIGRAM,(INTERVAL :1 TOTAL)
     Route: 048
     Dates: start: 20180701, end: 20180701
  10. TRIMEBUTINE [Suspect]
     Active Substance: TRIMEBUTINE
     Indication: SUICIDE ATTEMPT
     Dosage: 200 MILLIGRAM,14000 MG, TOTAL,(INTERVAL :1 TOTAL)
     Route: 048
     Dates: start: 20180701, end: 20180701
  11. PARACETAMOL [Suspect]
     Active Substance: ACETAMINOPHEN
     Indication: SUICIDE ATTEMPT
     Dosage: 79 GRAM,(INTERVAL :1 TOTAL)
     Route: 048
     Dates: start: 20180701, end: 20180701

REACTIONS (7)
  - Intentional overdose [Unknown]
  - Somnolence [Recovered/Resolved]
  - Malaise [Recovered/Resolved]
  - Toxicity to various agents [Recovered/Resolved]
  - Vomiting [Recovered/Resolved]
  - Product use issue [Unknown]
  - Mydriasis [Recovered/Resolved]

NARRATIVE: CASE EVENT DATE: 20180701
